FAERS Safety Report 4276236-X (Version None)
Quarter: 2004Q1

REPORT INFORMATION
  Report Type: 
  Country: None (occurrence: None)
  Receive Date: 20040121
  Receipt Date: 20031215
  Transmission Date: 20041129
  Serious: Yes (Other)
  Sender: FDA-Public Use
  Company Number: US-GLAXOSMITHKLINE-A0443179A

PATIENT

DRUGS (1)
  1. ZIAGEN [Suspect]

REACTIONS (1)
  - RENAL FAILURE [None]
